FAERS Safety Report 8406135-0 (Version None)
Quarter: 2012Q2

REPORT INFORMATION
  Report Type: 
  Country: None (occurrence: None)
  Receive Date: 20120530
  Receipt Date: 20081128
  Transmission Date: 20120825
  Serious: No
  Sender: FDA-Public Use
  Company Number: 004536

PATIENT
  Age: 60 Year
  Sex: Male

DRUGS (8)
  1. AMARYL [Concomitant]
  2. SUCRALFATE [Concomitant]
  3. ACTOS [Suspect]
  4. GLORIAMIN (SODIUM AZULENE SULFONATE - L-GLUTAMINE) [Concomitant]
  5. PLETAL [Suspect]
     Indication: LACUNAR INFARCTION
     Dosage: 100 MG, BID, ORAL
     Route: 048
     Dates: start: 20040610
  6. BASEN (VOGLIBOSE) [Concomitant]
  7. CANDESARTAN CILEXETIL [Suspect]
  8. BEROZYM (PANCREATIC ENZYME COMBINED DRUG) [Concomitant]

REACTIONS (3)
  - ELECTROCARDIOGRAM ST SEGMENT DEPRESSION [None]
  - DIABETES MELLITUS [None]
  - CORONARY ARTERY STENOSIS [None]
